FAERS Safety Report 20719871 (Version 3)
Quarter: 2022Q2

REPORT INFORMATION
  Report Type: Report from Study
  Country: US (occurrence: US)
  Receive Date: 20220418
  Receipt Date: 20220620
  Transmission Date: 20220720
  Serious: No
  Sender: FDA-Public Use
  Company Number: US-NOVARTISTESTPH-NVSC2022US086713

PATIENT
  Sex: Female

DRUGS (1)
  1. COSENTYX [Suspect]
     Active Substance: SECUKINUMAB
     Indication: Psoriasis
     Dosage: 300 MG (COMPLETED LOADING DOSES)
     Route: 058

REACTIONS (6)
  - Musculoskeletal discomfort [Unknown]
  - Fear of injection [Unknown]
  - Stress [Recovering/Resolving]
  - Anxiety [Unknown]
  - Limb discomfort [Unknown]
  - Psoriasis [Unknown]
